FAERS Safety Report 8270328-6 (Version None)
Quarter: 2012Q2

REPORT INFORMATION
  Report Type: 
  Country: None (occurrence: None)
  Receive Date: 20120410
  Receipt Date: 20120403
  Transmission Date: 20120825
  Serious: Yes (Other)
  Sender: FDA-Public Use
  Company Number: US-JNJFOC-20120211606

PATIENT
  Sex: Male
  Weight: 87.09 kg

DRUGS (2)
  1. HYDROCODONE BITARTRATE [Concomitant]
     Indication: PAIN
     Route: 048
     Dates: start: 20120101
  2. XARELTO [Suspect]
     Indication: THROMBOSIS PROPHYLAXIS
     Route: 048
     Dates: start: 20120205, end: 20120208

REACTIONS (3)
  - VOMITING [None]
  - DRUG INTOLERANCE [None]
  - MENTAL IMPAIRMENT [None]
